FAERS Safety Report 4548110-2 (Version None)
Quarter: 2004Q4

REPORT INFORMATION
  Report Type: 
  Country: None (occurrence: None)
  Receive Date: 20041227
  Receipt Date: 20040922
  Transmission Date: 20050328
  Serious: No
  Sender: FDA-Public Use
  Company Number: 04P-163-0274764-00

PATIENT
  Age: 58 Year
  Sex: Female

DRUGS (4)
  1. HUMIRA [Suspect]
     Indication: RHEUMATOID ARTHRITIS
     Dosage: 40 MG, 1 IN 2 WK, SUBCUTANEOUS
     Route: 058
  2. METHTOREXATE [Concomitant]
  3. FOLIC ACID [Concomitant]
  4. SERTRALINE HYDROCHLORIDE [Concomitant]

REACTIONS (3)
  - COUGH [None]
  - HEADACHE [None]
  - SINUSITIS [None]
